FAERS Safety Report 18460774 (Version 1)
Quarter: 2020Q4

REPORT INFORMATION
  Report Type: Spontaneous
  Country: GB (occurrence: GB)
  Receive Date: 20201104
  Receipt Date: 20201104
  Transmission Date: 20210114
  Serious: Yes (Hospitalization)
  Sender: FDA-Public Use
  Company Number: GB-TEVA-2020-GB-1844103

PATIENT
  Age: 79 Year
  Sex: Male

DRUGS (8)
  1. MIRABEGRON [Concomitant]
     Active Substance: MIRABEGRON
  2. COLECALCIFEROL [Concomitant]
     Active Substance: CHOLECALCIFEROL
  3. VOLTAROL EMULGEL P [Concomitant]
     Active Substance: DICLOFENAC DIETHYLAMINE
  4. PHENYTOIN. [Suspect]
     Active Substance: PHENYTOIN
     Indication: EPILEPSY
     Dosage: 100MG MORNING AND LUNCH, 150MG AT NIGHT, 250MG
     Route: 048
     Dates: end: 20200929
  5. LACTULOSE. [Concomitant]
     Active Substance: LACTULOSE
  6. PARACETAMOL [Concomitant]
     Active Substance: ACETAMINOPHEN
  7. FINASTERIDE. [Concomitant]
     Active Substance: FINASTERIDE
  8. SOLIFENACIN [Concomitant]
     Active Substance: SOLIFENACIN

REACTIONS (4)
  - Depressed level of consciousness [Unknown]
  - Bradycardia [Recovered/Resolved]
  - Electrocardiogram QT prolonged [Unknown]
  - Lethargy [Unknown]

NARRATIVE: CASE EVENT DATE: 20200929
